FAERS Safety Report 5954025-5 (Version None)
Quarter: 2008Q4

REPORT INFORMATION
  Report Type: 
  Country: None (occurrence: None)
  Receive Date: 20081114
  Receipt Date: 20081106
  Transmission Date: 20090506
  Serious: Yes (Other)
  Sender: FDA-Public Use
  Company Number: US-AMGEN-QUU317923

PATIENT
  Sex: Female

DRUGS (1)
  1. ENBREL [Suspect]
     Indication: RHEUMATOID ARTHRITIS
     Route: 058
     Dates: start: 20041101

REACTIONS (16)
  - ADRENAL MASS [None]
  - ANAEMIA VITAMIN B12 DEFICIENCY [None]
  - CYSTITIS [None]
  - CYSTITIS NONINFECTIVE [None]
  - HAEMORRHOIDS [None]
  - MYALGIA [None]
  - NEPHROLITHIASIS [None]
  - PH URINE ABNORMAL [None]
  - POST PROCEDURAL COMPLICATION [None]
  - PROCTALGIA [None]
  - RECTAL HAEMORRHAGE [None]
  - RECTAL PROLAPSE [None]
  - RHEUMATOID ARTHRITIS [None]
  - SCHAMBERG'S DISEASE [None]
  - URINE CYTOLOGY ABNORMAL [None]
  - URINE OUTPUT DECREASED [None]
